FAERS Safety Report 7961184-1 (Version None)
Quarter: 2011Q4

REPORT INFORMATION
  Report Type: 
  Country: None (occurrence: None)
  Receive Date: 20111207
  Receipt Date: 20111202
  Transmission Date: 20120403
  Serious: Yes (Other)
  Sender: FDA-Public Use
  Company Number: BR-PFIZER INC-2011295693

PATIENT
  Age: 74 Year
  Sex: Male

DRUGS (2)
  1. LYRICA [Suspect]
     Indication: SPINAL COLUMN STENOSIS
     Dosage: 75 MG 1X/DAY, STOPPED PROGRESSIVELY
     Route: 048
     Dates: start: 20111110, end: 20111119
  2. LYRICA [Suspect]
     Indication: PAIN
     Dosage: UNK
     Route: 048
     Dates: start: 20111001, end: 20110101

REACTIONS (2)
  - PAIN [None]
  - DIPLOPIA [None]
